FAERS Safety Report 5286899-8 (Version None)
Quarter: 2007Q1

REPORT INFORMATION
  Report Type: 
  Country: None (occurrence: None)
  Receive Date: 20070329
  Receipt Date: 20070321
  Transmission Date: 20070707
  Serious: Yes (Hospitalization)
  Sender: FDA-Public Use
  Company Number: 2007SP005305

PATIENT
  Sex: Female

DRUGS (3)
  1. POTASSIUM CHLORIDE [Suspect]
     Indication: DRUG USE FOR UNKNOWN INDICATION
  2. TENORMIN (CON.) [Concomitant]
  3. TAMBOCOR (CON.) [Concomitant]

REACTIONS (1)
  - ATRIAL FIBRILLATION [None]
